FAERS Safety Report 5102533-1 (Version None)
Quarter: 2006Q3

REPORT INFORMATION
  Report Type: 
  Country: None (occurrence: None)
  Receive Date: 20060907
  Receipt Date: 20060821
  Transmission Date: 20061208
  Serious: Yes (Life-Threatening)
  Sender: FDA-Public Use
  Company Number: 2006RR-03591

PATIENT
  Age: 68 Year
  Sex: Male

DRUGS (2)
  1. METFORMIN HCL [Suspect]
     Indication: DIABETES MELLITUS INSULIN-DEPENDENT
     Dosage: TID, ORAL
     Route: 048
     Dates: start: 20060731, end: 20060803
  2. GLIPIZIDE [Suspect]
     Indication: DIABETES MELLITUS INSULIN-DEPENDENT
     Dosage: QD, ORAL
     Route: 048
     Dates: start: 20060731, end: 20060803

REACTIONS (1)
  - BLOOD GLUCOSE INCREASED [None]
